FAERS Safety Report 22535276 (Version 1)
Quarter: 2023Q2

REPORT INFORMATION
  Report Type: Spontaneous
  Country: US (occurrence: None)
  Receive Date: 20230607
  Receipt Date: 20230607
  Transmission Date: 20230721
  Serious: No
  Sender: FDA-Public Use
  Company Number: None

PATIENT
  Age: 68 Year
  Sex: Male
  Weight: 86.4 kg

DRUGS (8)
  1. AMLODIPINE BESYLATE [Suspect]
     Active Substance: AMLODIPINE BESYLATE
     Indication: Blood pressure measurement
     Dosage: OTHER QUANTITY : 1.5 TABLET(S);?FREQUENCY : DAILY;?
     Route: 048
     Dates: start: 20230423
  2. KEPPRA [Concomitant]
     Active Substance: LEVETIRACETAM
  3. FOLIC ACID [Concomitant]
     Active Substance: FOLIC ACID
  4. ASPIRIN [Concomitant]
     Active Substance: ASPIRIN
  5. AMOLODIPINE bESYLATE [Concomitant]
  6. DORZOLAMIDE\TIMOLOL [Concomitant]
     Active Substance: DORZOLAMIDE\TIMOLOL
  7. ALPHAGAN P [Concomitant]
     Active Substance: BRIMONIDINE TARTRATE
  8. RHOPRESSA [Concomitant]
     Active Substance: NETARSUDIL MESYLATE

REACTIONS (6)
  - Weight increased [None]
  - Insomnia [None]
  - Depression [None]
  - Mood swings [None]
  - Lethargy [None]
  - Therapy change [None]

NARRATIVE: CASE EVENT DATE: 20230501
